FAERS Safety Report 24701446 (Version 2)
Quarter: 2025Q1

REPORT INFORMATION
  Report Type: Spontaneous
  Country: KR (occurrence: KR)
  Receive Date: 20241205
  Receipt Date: 20250124
  Transmission Date: 20250408
  Serious: No
  Sender: PFIZER
  Company Number: KR-PFIZER INC-202400317084

PATIENT

DRUGS (1)
  1. GENOTROPIN [Suspect]
     Active Substance: SOMATROPIN

REACTIONS (2)
  - Device information output issue [Unknown]
  - Device leakage [Unknown]
